FAERS Safety Report 14357702 (Version 6)
Quarter: 2018Q1

REPORT INFORMATION
  Report Type: Report from Study
  Country: US (occurrence: US)
  Receive Date: 20180105
  Receipt Date: 20180327
  Transmission Date: 20180509
  Serious: Yes (Other)
  Sender: FDA-Public Use
  Company Number: US-AMGEN-USASL2017186016

PATIENT
  Age: 77 Year
  Sex: Female
  Weight: 78.5 kg

DRUGS (3)
  1. REPATHA [Suspect]
     Active Substance: EVOLOCUMAB
     Indication: BLOOD CHOLESTEROL INCREASED
     Dosage: 140 MG, Q2WK
     Route: 058
  2. REPATHA [Suspect]
     Active Substance: EVOLOCUMAB
     Indication: ARTERIOSCLEROSIS CORONARY ARTERY
  3. REPATHA [Suspect]
     Active Substance: EVOLOCUMAB
     Indication: HYPERCHOLESTEROLAEMIA
     Dosage: 140 MG/ML, Q2WK
     Route: 058
     Dates: start: 20171108, end: 20171206

REACTIONS (13)
  - Upper respiratory tract infection [Recovering/Resolving]
  - Arthralgia [Not Recovered/Not Resolved]
  - Muscular weakness [Recovering/Resolving]
  - Pain in extremity [Not Recovered/Not Resolved]
  - Fatigue [Recovering/Resolving]
  - Headache [Recovered/Resolved]
  - Malaise [Recovering/Resolving]
  - Asthenia [Recovering/Resolving]
  - Lethargy [Recovering/Resolving]
  - Urticaria [Not Recovered/Not Resolved]
  - Back pain [Recovering/Resolving]
  - Drug dose omission [Unknown]
  - Wrong technique in product usage process [Unknown]

NARRATIVE: CASE EVENT DATE: 201711
